FAERS Safety Report 7942598-2 (Version None)
Quarter: 2011Q4

REPORT INFORMATION
  Report Type: 
  Country: None (occurrence: None)
  Receive Date: 20111128
  Receipt Date: 20111122
  Transmission Date: 20120403
  Serious: Yes (Other)
  Sender: FDA-Public Use
  Company Number: DE-GLAXOSMITHKLINE-D0072679A

PATIENT
  Sex: Female

DRUGS (1)
  1. FLUTICASONE FUROATE [Suspect]
     Indication: RHINITIS ALLERGIC
     Dosage: 2PUFF PER DAY
     Route: 045
     Dates: start: 20110805, end: 20110812

REACTIONS (1)
  - VISUAL ACUITY REDUCED [None]
